FAERS Safety Report 7099281-8 (Version None)
Quarter: 2010Q4

REPORT INFORMATION
  Report Type: 
  Country: None (occurrence: None)
  Receive Date: 20101112
  Receipt Date: 20101101
  Transmission Date: 20110411
  Serious: Yes (Hospitalization, Other)
  Sender: FDA-Public Use
  Company Number: PHHY2010JP65056

PATIENT
  Age: 72 Year
  Sex: Male

DRUGS (5)
  1. TEGRETOL [Suspect]
     Indication: TRIGEMINAL NEURALGIA
     Dosage: 200 MG, QD
     Route: 048
     Dates: start: 20100813, end: 20100921
  2. TEGRETOL [Suspect]
     Indication: FACIAL PAIN
  3. 8-HOUR BAYER [Concomitant]
     Dosage: UNK
     Route: 048
     Dates: start: 20100813, end: 20100921
  4. PLETAL [Concomitant]
     Dosage: UNK
     Route: 048
     Dates: start: 20100813, end: 20100921
  5. OMEPRAZON [Concomitant]
     Dosage: UNK
     Dates: start: 20100813, end: 20100921

REACTIONS (4)
  - ANAL HAEMORRHAGE [None]
  - DRUG ERUPTION [None]
  - ECZEMA [None]
  - PRURITUS [None]
